FAERS Safety Report 9971361 (Version 2)
Quarter: 2014Q1

REPORT INFORMATION
  Report Type: Report from Study
  Country: US (occurrence: US)
  Receive Date: 20140306
  Receipt Date: 20140306
  Transmission Date: 20141002
  Serious: Yes (Hospitalization)
  Sender: FDA-Public Use
  Company Number: US-ABBVIE-13P-163-1086728-00

PATIENT
  Age: 63 Year
  Sex: Male
  Weight: 64.7 kg

DRUGS (6)
  1. HUMIRA [Suspect]
     Indication: CROHN^S DISEASE
     Dates: start: 20121201, end: 20130401
  2. TYLENOL [Concomitant]
     Indication: PAIN
  3. TYLENOL [Concomitant]
     Indication: PYREXIA
  4. VITAMIN B12 [Concomitant]
     Indication: VITAMIN B12 DEFICIENCY
  5. PREDNISONE [Concomitant]
     Indication: CROHN^S DISEASE
  6. IRON [Concomitant]
     Indication: ANAEMIA
     Route: 042

REACTIONS (4)
  - Crohn^s disease [Not Recovered/Not Resolved]
  - Drug ineffective [Not Recovered/Not Resolved]
  - Pyrexia [Not Recovered/Not Resolved]
  - Fatigue [Not Recovered/Not Resolved]
